FAERS Safety Report 5531028-6 (Version None)
Quarter: 2007Q4

REPORT INFORMATION
  Report Type: 
  Country: None (occurrence: None)
  Receive Date: 20071130
  Receipt Date: 20071119
  Transmission Date: 20080405
  Serious: Yes (Hospitalization)
  Sender: FDA-Public Use
  Company Number: DE-PFIZER INC-2007097681

PATIENT
  Sex: Female
  Weight: 50 kg

DRUGS (6)
  1. CHAMPIX [Suspect]
     Indication: SMOKING CESSATION THERAPY
     Dosage: DAILY DOSE:2MG
     Route: 048
     Dates: start: 20070814, end: 20070915
  2. CHAMPIX [Suspect]
     Indication: NICOTINE DEPENDENCE
  3. METOPROLOL [Concomitant]
     Dosage: TEXT:100 MG PER DAY
     Route: 048
  4. SPIRONOLACTONE [Concomitant]
     Dosage: TEXT:50 MG PER DAY
     Route: 048
  5. ALL OTHER THERAPEUTIC PRODUCTS [Concomitant]
     Route: 048
  6. NOVORAPID [Concomitant]
     Route: 058

REACTIONS (1)
  - SUBILEUS [None]
